FAERS Safety Report 8822056 (Version 3)
Quarter: 2014Q2

REPORT INFORMATION
  Report Type: Report from Study
  Country: US (occurrence: US)
  Receive Date: 20121003
  Receipt Date: 20140529
  Transmission Date: 20141212
  Serious: Yes (Congenital Anomaly, Other)
  Sender: FDA-Public Use
  Company Number: US-BIOGENIDEC-2012BI040642

PATIENT
  Age: 0 Day
  Sex: Female
  Weight: 2 kg

DRUGS (1)
  1. AVONEX [Suspect]
     Indication: MATERNAL EXPOSURE TIMING UNSPECIFIED
     Route: 064
     Dates: start: 20100814, end: 20110122

REACTIONS (5)
  - Cyanosis neonatal [Recovered/Resolved]
  - Apnoea neonatal [Recovered/Resolved]
  - Foetal heart rate decreased [Recovered/Resolved]
  - Jaundice neonatal [Recovered/Resolved]
  - Congenital skin dimples [Unknown]
